FAERS Safety Report 4475466-1 (Version None)
Quarter: 2004Q4

REPORT INFORMATION
  Report Type: 
  Country: None (occurrence: None)
  Receive Date: 20041014
  Receipt Date: 20041014
  Transmission Date: 20050328
  Serious: Yes (Hospitalization)
  Sender: FDA-Public Use
  Company Number: None

PATIENT
  Age: 75 Year
  Sex: Male
  Weight: 89.3 kg

DRUGS (10)
  1. MIDODRINE HCL [Suspect]
     Indication: ORTHOSTATIC HYPOTENSION
     Dosage: 5 MG BID ORAL
     Route: 048
  2. CLOPIDOGREL [Concomitant]
  3. ETODOLAC [Concomitant]
  4. FINASTERIDE [Concomitant]
  5. GABAPENTIN [Concomitant]
  6. GLIPIZIDE [Concomitant]
  7. MECLIZINE [Concomitant]
  8. METOPROLOL [Concomitant]
  9. NITROGLYCERIN [Concomitant]
  10. SIMVASTATIN [Concomitant]

REACTIONS (3)
  - BLOOD PRESSURE INCREASED [None]
  - CHEST DISCOMFORT [None]
  - CHEST PAIN [None]
